FAERS Safety Report 18566685 (Version 1)
Quarter: 2020Q4

REPORT INFORMATION
  Report Type: Spontaneous
  Country: DE (occurrence: DE)
  Receive Date: 20201201
  Receipt Date: 20201201
  Transmission Date: 20210114
  Serious: Yes (Other)
  Sender: FDA-Public Use
  Company Number: DE-ASTRAZENECA-2020SF58210

PATIENT
  Age: 59 Year
  Sex: Female

DRUGS (5)
  1. TAGRISSO [Suspect]
     Active Substance: OSIMERTINIB
     Dosage: UNKNOWN DOSE
     Route: 048
     Dates: end: 202006
  2. BEVACICUMAB [Concomitant]
     Indication: DRUG WITHDRAWAL MAINTENANCE THERAPY
     Dates: start: 202006
  3. PACLITAXEL. [Concomitant]
     Active Substance: PACLITAXEL
     Dates: start: 202006
  4. ATEZOLIZUMAB. [Concomitant]
     Active Substance: ATEZOLIZUMAB
     Indication: DRUG WITHDRAWAL MAINTENANCE THERAPY
     Dates: start: 202006
  5. CARBOPLATIN. [Concomitant]
     Active Substance: CARBOPLATIN
     Dates: start: 202006

REACTIONS (7)
  - Ascites [Unknown]
  - Metastases to adrenals [Recovering/Resolving]
  - Osteolysis [Unknown]
  - Malignant neoplasm progression [Unknown]
  - Lymphadenopathy [Unknown]
  - Pleural effusion [Recovered/Resolved]
  - Metastases to lymph nodes [Unknown]

NARRATIVE: CASE EVENT DATE: 201901
